FAERS Safety Report 15192798 (Version 1)
Quarter: 2018Q3

REPORT INFORMATION
  Report Type: Spontaneous
  Country: NL (occurrence: NL)
  Receive Date: 20180725
  Receipt Date: 20180725
  Transmission Date: 20181010
  Serious: Yes (Hospitalization)
  Sender: FDA-Public Use
  Company Number: NL-TEVA-2018-NL-929289

PATIENT
  Age: 71 Year
  Sex: Male

DRUGS (8)
  1. METOPROLOL RETARD 50 [Concomitant]
     Dosage: 50 MILLIGRAM DAILY; 50 MILLIGRAM, ONCE A DAY
     Route: 065
     Dates: start: 20180222, end: 20180222
  2. DOXYCYCLINE AUROBINDO DISPERTABLET 100MG [Suspect]
     Active Substance: DOXYCYCLINE
     Dosage: EERSTE DAG 2 STUKS, DAARNA 1 PD
     Dates: start: 20180220, end: 20180221
  3. TAMSULOSINE HCL RETARD 0.4 MG [Concomitant]
     Indication: PRODUCT USED FOR UNKNOWN INDICATION
     Dosage: .4 MILLIGRAM DAILY; 0.4 MILLIGRAM, ONCE A DAY
     Route: 065
  4. DOXYCYCLINE AUROBINDO DISPERTABLET 100MG [Suspect]
     Active Substance: DOXYCYCLINE
     Indication: BRONCHITIS
     Dosage: 100 MILLIGRAM DAILY; EERSTE DAG 2 STUKS, DAARNA 1 PD
     Route: 065
     Dates: start: 20180221, end: 20180222
  5. PANTAPROZOL TABLET MSR 40 MG PCH [Concomitant]
     Indication: PRODUCT USED FOR UNKNOWN INDICATION
     Dosage: 40 MILLIGRAM DAILY; 40 MILLIGRAM
  6. SIMVASTATINE TABLET 40 MG TEVA [Concomitant]
     Indication: PRODUCT USED FOR UNKNOWN INDICATION
     Dosage: 40 MILLIGRAM DAILY; 40 MILLIGRAM, ONCE A DAY
  7. ACENOCOUMAROL [Concomitant]
     Active Substance: ACENOCOUMAROL
     Dosage: MEESTAL 3STUKS  EN 1 X PER WEEK 2 TABLETJES PD
  8. DOXYCYCLINE. [Suspect]
     Active Substance: DOXYCYCLINE
     Dosage: 100 MILLIGRAM DAILY; 100 MILLIGRAM, ONCE A DAY
     Route: 065
     Dates: start: 20180221, end: 20180222

REACTIONS (5)
  - Dehydration [Recovering/Resolving]
  - Presyncope [Recovering/Resolving]
  - Diarrhoea [Recovering/Resolving]
  - Bradycardia [Recovering/Resolving]
  - Malaise [Recovering/Resolving]

NARRATIVE: CASE EVENT DATE: 20180222
